FAERS Safety Report 14202483 (Version 3)
Quarter: 2018Q1

REPORT INFORMATION
  Report Type: Report from Study
  Country: CA (occurrence: CA)
  Receive Date: 20171117
  Receipt Date: 20180206
  Transmission Date: 20180508
  Serious: Yes (Hospitalization, Other)
  Sender: FDA-Public Use
  Company Number: CA-INCYTE CORPORATION-2017IN008401

PATIENT

DRUGS (7)
  1. JAKAVI [Suspect]
     Active Substance: RUXOLITINIB
     Dosage: 10 MG,  (1 WEEK)
     Route: 048
  2. JAKAVI [Suspect]
     Active Substance: RUXOLITINIB
     Dosage: 20 MG, BID
     Route: 048
  3. JAKAVI [Suspect]
     Active Substance: RUXOLITINIB
     Dosage: 10 MG, BID (WAS CUTTING 20 MG TABLET TO MAKE REQUIRED DOSE OF 10 MG)
     Route: 048
  4. JAKAVI [Suspect]
     Active Substance: RUXOLITINIB
     Indication: MYELOFIBROSIS
     Dosage: 20 MG, BID
     Route: 048
     Dates: start: 20170710
  5. JAKAVI [Suspect]
     Active Substance: RUXOLITINIB
     Dosage: 20 MG,  (1 WEEK)
     Route: 048
  6. JAKAVI [Suspect]
     Active Substance: RUXOLITINIB
     Dosage: 15 MG, (1 WEEK)
     Route: 048
  7. JAKAVI [Suspect]
     Active Substance: RUXOLITINIB
     Dosage: 20 MG, BID
     Route: 048

REACTIONS (10)
  - Pulmonary oedema [Unknown]
  - White blood cell count increased [Unknown]
  - Platelet count decreased [Unknown]
  - Blood count abnormal [Unknown]
  - Blast cell count increased [Recovering/Resolving]
  - Epistaxis [Unknown]
  - Incorrect dose administered [Unknown]
  - Wrong technique in product usage process [Unknown]
  - Haemoglobin decreased [Unknown]
  - Splenomegaly [Unknown]
